FAERS Safety Report 4297961-0 (Version None)
Quarter: 2004Q1

REPORT INFORMATION
  Report Type: 
  Country: None (occurrence: None)
  Receive Date: 20040218
  Receipt Date: 20001222
  Transmission Date: 20041129
  Serious: Yes (Other)
  Sender: FDA-Public Use
  Company Number: US-BRISTOL-MYERS SQUIBB COMPANY-10659944

PATIENT
  Sex: Female

DRUGS (23)
  1. STADOL [Suspect]
     Indication: MIGRAINE
     Dosage: ONE SPRAY PER NOSTRIL AS NEEDED
     Route: 045
     Dates: start: 19920101
  2. STADOL [Suspect]
     Indication: FACIAL PAIN
     Dosage: ONE SPRAY PER NOSTRIL AS NEEDED
     Route: 045
     Dates: start: 19920101
  3. LORAZEPAM [Concomitant]
  4. HYDROCODONE + ACETAMINOPHEN [Concomitant]
  5. ZOLOFT [Concomitant]
  6. MEPERIDINE HCL [Concomitant]
  7. ULTRAM [Concomitant]
  8. FLONASE [Concomitant]
  9. DOXEPIN HCL [Concomitant]
  10. AMBIEN [Concomitant]
  11. ACETAMINOPHEN + CODEINE PHOSPHATE [Concomitant]
  12. SERZONE [Concomitant]
  13. TORADOL [Concomitant]
  14. TALWIN [Concomitant]
  15. LORABID [Concomitant]
  16. PROSOM [Concomitant]
  17. ZOMIG [Concomitant]
  18. BUTALBITAL [Concomitant]
  19. XANAX [Concomitant]
  20. FIORINAL [Concomitant]
  21. TOFRANIL [Concomitant]
  22. TEGRETOL [Concomitant]
  23. EZOL [Concomitant]

REACTIONS (3)
  - CONSTIPATION [None]
  - DEPENDENCE [None]
  - STRESS SYMPTOMS [None]
